FAERS Safety Report 21968440 (Version 2)
Quarter: 2023Q1

REPORT INFORMATION
  Report Type: Spontaneous
  Country: DE (occurrence: DE)
  Receive Date: 20230208
  Receipt Date: 20230216
  Transmission Date: 20230417
  Serious: Yes (Hospitalization)
  Sender: FDA-Public Use
  Company Number: DE-STADA-268074

PATIENT
  Age: 16 Year

DRUGS (3)
  1. RISPERIDONE [Interacting]
     Active Substance: RISPERIDONE
     Indication: Autism spectrum disorder
     Route: 065
  2. MELPERONE [Interacting]
     Active Substance: MELPERONE
     Indication: Autism spectrum disorder
     Route: 065
  3. ARIPIPRAZOLE [Interacting]
     Active Substance: ARIPIPRAZOLE
     Indication: Autism spectrum disorder
     Route: 065

REACTIONS (4)
  - Medication error [Unknown]
  - Electrocardiogram QT prolonged [Unknown]
  - Drug interaction [Unknown]
  - Off label use [Unknown]
